FAERS Safety Report 5812128-X (Version None)
Quarter: 2008Q3

REPORT INFORMATION
  Report Type: 
  Country: None (occurrence: None)
  Receive Date: 20080716
  Receipt Date: 20080707
  Transmission Date: 20090109
  Serious: Yes (Life-Threatening)
  Sender: FDA-Public Use
  Company Number: JP-ABBOTT-07P-087-0361742-00

PATIENT
  Age: 77 Year
  Sex: Male

DRUGS (6)
  1. LEUPROLIDE ACETATE [Suspect]
     Indication: PROSTATE CANCER STAGE II
     Route: 058
     Dates: start: 20060722, end: 20071227
  2. BICALUTAMIDE [Concomitant]
     Indication: PROSTATE CANCER STAGE II
     Dosage: 80 MG PER DAY
     Route: 048
     Dates: start: 20060719, end: 20061011
  3. BICALUTAMIDE [Concomitant]
     Dosage: 80 MG PER DAY
     Route: 048
     Dates: start: 20070426, end: 20070718
  4. BICALUTAMIDE [Concomitant]
     Dates: start: 20071004, end: 20071226
  5. FLUTAMIDE [Concomitant]
     Indication: PROSTATE CANCER STAGE II
     Route: 048
     Dates: start: 20061012, end: 20070110
  6. FLUTAMIDE [Concomitant]
     Dates: start: 20070719, end: 20071003

REACTIONS (2)
  - GASTRIC CANCER [None]
  - GASTRIC HAEMORRHAGE [None]
